FAERS Safety Report 8412918-3 (Version None)
Quarter: 2012Q2

REPORT INFORMATION
  Report Type: 
  Country: None (occurrence: None)
  Receive Date: 20120323
  Receipt Date: 20110204
  Transmission Date: 20120825
  Serious: Yes (Hospitalization)
  Sender: FDA-Public Use
  Company Number: 163-21880-11021047

PATIENT
  Age: 69 Year
  Sex: Female

DRUGS (1)
  1. REVLIMID [Suspect]
     Indication: MULTIPLE MYELOMA
     Dosage: 25 MG, DAILY X 21 DAYS ON, THEN 7 DAYS OFF, PO
     Route: 048
     Dates: start: 20100604

REACTIONS (3)
  - INCOHERENT [None]
  - VIRAL INFECTION [None]
  - PYREXIA [None]
